FAERS Safety Report 9057833 (Version 1)
Quarter: 2013Q1

REPORT INFORMATION
  Report Type: Spontaneous
  Country: US (occurrence: US)
  Receive Date: 20130204
  Receipt Date: 20130204
  Transmission Date: 20140127
  Serious: No
  Sender: FDA-Public Use
  Company Number: US-009507513-1302USA001069

PATIENT
  Sex: Male

DRUGS (2)
  1. MIRALAX [Suspect]
     Indication: GASTROINTESTINAL DISORDER
     Dosage: UNK, QD
     Route: 048
     Dates: start: 201210
  2. MIRALAX [Suspect]
     Indication: GASTROINTESTINAL DISORDER

REACTIONS (2)
  - Nausea [Unknown]
  - Incorrect drug administration duration [Unknown]
